FAERS Safety Report 7069627-5 (Version None)
Quarter: 2010Q4

REPORT INFORMATION
  Report Type: 
  Country: None (occurrence: None)
  Receive Date: 20101028
  Receipt Date: 20100419
  Transmission Date: 20110411
  Serious: No
  Sender: FDA-Public Use
  Company Number: US-WYE-H14681010

PATIENT
  Sex: Female
  Weight: 77.18 kg

DRUGS (3)
  1. VENLAFAXINE HYDROCHLORIDE [Suspect]
     Indication: DEPRESSION
     Route: 048
     Dates: start: 20100101, end: 20100101
  2. VENLAFAXINE HYDROCHLORIDE [Suspect]
     Indication: ANXIETY
  3. ADVAIR DISKUS 100/50 [Concomitant]

REACTIONS (1)
  - ANXIETY [None]
